FAERS Safety Report 7646966 (Version 2)
Quarter: 2019Q2

REPORT INFORMATION
  Report Type: Spontaneous
  Country: CA (occurrence: CA)
  Receive Date: 20101029
  Receipt Date: 20190513
  Transmission Date: 20190711
  Serious: Yes (Other)
  Sender: FDA-Public Use
  Company Number: CA-ACTELION-A-US2008-19866

PATIENT
  Age: 29 Year
  Sex: Female

DRUGS (11)
  1. TRACLEER [Suspect]
     Active Substance: BOSENTAN
     Indication: PULMONARY ARTERIAL HYPERTENSION
     Dosage: 125 MG, BID
     Route: 048
  2. SILDENAFIL. [Concomitant]
     Active Substance: SILDENAFIL
  3. NABILONE [Concomitant]
     Active Substance: NABILONE
  4. CLONIDINE. [Concomitant]
     Active Substance: CLONIDINE
  5. FLOLAN [Concomitant]
     Active Substance: EPOPROSTENOL SODIUM
  6. RALTEGRAVIR. [Concomitant]
     Active Substance: RALTEGRAVIR
  7. LASIX [Concomitant]
     Active Substance: FUROSEMIDE
  8. RISPERIDONE. [Concomitant]
     Active Substance: RISPERIDONE
  9. SPIRONOLACTONE. [Concomitant]
     Active Substance: SPIRONOLACTONE
  10. VIAGRA [Concomitant]
     Active Substance: SILDENAFIL CITRATE
  11. GRAVOL [Concomitant]
     Active Substance: DIMENHYDRINATE

REACTIONS (3)
  - Pregnancy [Unknown]
  - Hepatitis C [Unknown]
  - Abortion induced [Unknown]

NARRATIVE: CASE EVENT DATE: 20080130
